FAERS Safety Report 5248014-6 (Version None)
Quarter: 2007Q1

REPORT INFORMATION
  Report Type: 
  Country: None (occurrence: None)
  Receive Date: 20070222
  Receipt Date: 20070209
  Transmission Date: 20070707
  Serious: Yes (Hospitalization)
  Sender: FDA-Public Use
  Company Number: 2007-153414-NL

PATIENT
  Age: 30 Year
  Sex: Female

DRUGS (1)
  1. NUVARING [Suspect]
     Dosage: DF NI
     Dates: start: 20050401, end: 20051001

REACTIONS (7)
  - EMOTIONAL DISORDER [None]
  - LIVER FUNCTION TEST ABNORMAL [None]
  - MIGRAINE WITH AURA [None]
  - NAUSEA [None]
  - NO THERAPEUTIC RESPONSE [None]
  - SINUSITIS [None]
  - VOMITING [None]
